FAERS Safety Report 14353708 (Version 1)
Quarter: 2018Q1

REPORT INFORMATION
  Report Type: Spontaneous
  Country: FR (occurrence: FR)
  Receive Date: 20180105
  Receipt Date: 20180105
  Transmission Date: 20180509
  Serious: Yes (Other)
  Sender: FDA-Public Use
  Company Number: FR-MERCK KGAA-2038427

PATIENT
  Age: 17 Year
  Sex: Male
  Weight: 68 kg

DRUGS (1)
  1. NOVOTHYROX [Suspect]
     Active Substance: LEVOTHYROXINE SODIUM
     Indication: FOLLICULAR THYROID CANCER
     Route: 048
     Dates: start: 20171023, end: 20171105

REACTIONS (8)
  - Disorientation [Recovered/Resolved]
  - Fatigue [Recovering/Resolving]
  - Hemiparesis [Recovered/Resolved]
  - Amnesia [Recovering/Resolving]
  - Blood thyroid stimulating hormone decreased [Not Recovered/Not Resolved]
  - Weight decreased [Not Recovered/Not Resolved]
  - Vision blurred [Recovering/Resolving]
  - Headache [Recovered/Resolved]

NARRATIVE: CASE EVENT DATE: 20171102
